APPROVED DRUG PRODUCT: LEXXEL
Active Ingredient: ENALAPRIL MALEATE; FELODIPINE
Strength: 5MG;2.5MG
Dosage Form/Route: TABLET, EXTENDED RELEASE;ORAL
Application: N020668 | Product #002
Applicant: ASTRAZENECA PHARMACEUTICALS LP
Approved: Oct 28, 1998 | RLD: No | RS: No | Type: DISCN